FAERS Safety Report 7729097-8 (Version None)
Quarter: 2011Q3

REPORT INFORMATION
  Report Type: 
  Country: None (occurrence: None)
  Receive Date: 20110906
  Receipt Date: 20110825
  Transmission Date: 20111222
  Serious: Yes (Hospitalization)
  Sender: FDA-Public Use
  Company Number: US-JNJFOC-20110811941

PATIENT
  Sex: Male

DRUGS (10)
  1. RISPERDAL CONSTA [Suspect]
     Indication: SCHIZOAFFECTIVE DISORDER
     Route: 030
     Dates: start: 20100101
  2. GLIMEPRID [Concomitant]
     Route: 065
  3. RISPERDAL CONSTA [Suspect]
     Indication: BIPOLAR DISORDER
     Route: 030
     Dates: start: 20100101
  4. ASPIRIN [Concomitant]
     Route: 065
  5. CRESTOR [Concomitant]
     Route: 065
  6. ACTOS [Concomitant]
     Route: 065
  7. TRILEPTAL [Concomitant]
     Route: 065
  8. JANUVIA [Concomitant]
     Route: 065
  9. PLAVIX [Concomitant]
     Route: 065
  10. COZAAR [Concomitant]
     Route: 065

REACTIONS (1)
  - STENT PLACEMENT [None]
